FAERS Safety Report 6654537-5 (Version None)
Quarter: 2010Q1

REPORT INFORMATION
  Report Type: 
  Country: None (occurrence: None)
  Receive Date: 20100326
  Receipt Date: 20100315
  Transmission Date: 20100710
  Serious: Yes (Other)
  Sender: FDA-Public Use
  Company Number: US-PFIZER INC-2010017539

PATIENT
  Sex: Male
  Weight: 69.841 kg

DRUGS (1)
  1. LYRICA [Suspect]
     Indication: NECK PAIN
     Dosage: 50 MG, 1X/DAY
     Dates: start: 20100201

REACTIONS (10)
  - ABDOMINAL DISCOMFORT [None]
  - DIZZINESS [None]
  - DRUG INEFFECTIVE [None]
  - DRY MOUTH [None]
  - DYSGEUSIA [None]
  - INSOMNIA [None]
  - NAUSEA [None]
  - PROSTATIC SPECIFIC ANTIGEN INCREASED [None]
  - SOMNOLENCE [None]
  - VISION BLURRED [None]
